FAERS Safety Report 5500697-9 (Version None)
Quarter: 2007Q4

REPORT INFORMATION
  Report Type: 
  Country: None (occurrence: None)
  Receive Date: 20071025
  Receipt Date: 20071017
  Transmission Date: 20080405
  Serious: Yes (Hospitalization)
  Sender: FDA-Public Use
  Company Number: 2007-04680

PATIENT
  Age: 29 Month
  Sex: Male
  Weight: 13.7 kg

DRUGS (12)
  1. ACETAMINOPHEN W/ CODEINE [Suspect]
     Indication: PROCEDURAL PAIN
     Dosage: 1.75 MG/KG, SINGLE POD 2, ORAL; 12-24 MG, 4 DOSES POD 1, ORAL; 1.75 MG/KG X 2 DAY OF SURGERY, ORAL
     Route: 048
     Dates: start: 20070101, end: 20070101
  2. ACETAMINOPHEN W/ CODEINE [Suspect]
     Indication: SLEEP TERROR
     Dosage: 1.75 MG/KG, SINGLE POD 2, ORAL; 12-24 MG, 4 DOSES POD 1, ORAL; 1.75 MG/KG X 2 DAY OF SURGERY, ORAL
     Route: 048
     Dates: start: 20070101, end: 20070101
  3. ACETAMINOPHEN W/ CODEINE [Suspect]
     Indication: PROCEDURAL PAIN
     Dosage: 1.75 MG/KG, SINGLE POD 2, ORAL; 12-24 MG, 4 DOSES POD 1, ORAL; 1.75 MG/KG X 2 DAY OF SURGERY, ORAL
     Route: 048
     Dates: start: 20070101, end: 20070101
  4. ACETAMINOPHEN W/ CODEINE [Suspect]
     Indication: SLEEP TERROR
     Dosage: 1.75 MG/KG, SINGLE POD 2, ORAL; 12-24 MG, 4 DOSES POD 1, ORAL; 1.75 MG/KG X 2 DAY OF SURGERY, ORAL
     Route: 048
     Dates: start: 20070101, end: 20070101
  5. ACETAMINOPHEN W/ CODEINE [Suspect]
     Indication: PROCEDURAL PAIN
     Dosage: 1.75 MG/KG, SINGLE POD 2, ORAL; 12-24 MG, 4 DOSES POD 1, ORAL; 1.75 MG/KG X 2 DAY OF SURGERY, ORAL
     Route: 048
     Dates: start: 20070101, end: 20070101
  6. ACETAMINOPHEN W/ CODEINE [Suspect]
     Indication: SLEEP TERROR
     Dosage: 1.75 MG/KG, SINGLE POD 2, ORAL; 12-24 MG, 4 DOSES POD 1, ORAL; 1.75 MG/KG X 2 DAY OF SURGERY, ORAL
     Route: 048
     Dates: start: 20070101, end: 20070101
  7. MORPHINE [Concomitant]
  8. ONDANSETRON HCL [Concomitant]
  9. HYDROCORTISONE [Concomitant]
  10. SEVOFLURANE [Concomitant]
  11. OXYGEN (OXYGEN) [Concomitant]
  12. N20 [Concomitant]

REACTIONS (3)
  - APNOEA [None]
  - CEREBRAL INFARCTION [None]
  - STUPOR [None]
